FAERS Safety Report 17262514 (Version 7)
Quarter: 2023Q1

REPORT INFORMATION
  Report Type: Report from Study
  Country: MY (occurrence: MY)
  Receive Date: 20200113
  Receipt Date: 20230220
  Transmission Date: 20230417
  Serious: Yes (Other)
  Sender: FDA-Public Use
  Company Number: NVSC2020MY004876

PATIENT
  Sex: Female

DRUGS (4)
  1. COSENTYX [Suspect]
     Active Substance: SECUKINUMAB
     Indication: Psoriasis
     Dosage: 300 MG
     Route: 058
     Dates: start: 20191015
  2. COSENTYX [Suspect]
     Active Substance: SECUKINUMAB
     Dosage: UNK
     Route: 065
     Dates: start: 20200313
  3. COSENTYX [Suspect]
     Active Substance: SECUKINUMAB
     Dosage: UNK
     Route: 065
     Dates: start: 202101
  4. GLIVEC [Concomitant]
     Active Substance: IMATINIB MESYLATE
     Indication: Psoriasis
     Dosage: 300 MG
     Route: 058

REACTIONS (3)
  - Leukopenia [Unknown]
  - Eye infection [Unknown]
  - Maternal exposure during pregnancy [Unknown]
